FAERS Safety Report 7128161-4 (Version None)
Quarter: 2010Q4

REPORT INFORMATION
  Report Type: 
  Country: None (occurrence: None)
  Receive Date: 20101130
  Receipt Date: 20101119
  Transmission Date: 20110411
  Serious: Yes (Hospitalization)
  Sender: FDA-Public Use
  Company Number: JP-NOVOPROD-316815

PATIENT
  Age: 73 Year
  Sex: Female
  Weight: 44 kg

DRUGS (13)
  1. VICTOZA [Suspect]
     Indication: TYPE 2 DIABETES MELLITUS
     Dosage: 0.3 MG, QD
     Route: 058
     Dates: start: 20100902
  2. VICTOZA [Suspect]
     Dosage: 0.6 MG, QD
     Route: 058
     Dates: end: 20101019
  3. VICTOZA [Suspect]
     Dosage: 0.3 MG, QD
     Dates: start: 20101104
  4. VICTOZA [Suspect]
     Dosage: 0.6 MG, QD
  5. ARICEPT [Suspect]
     Indication: PRODUCT USED FOR UNKNOWN INDICATION
     Dosage: 3.0 MG, QD
     Route: 048
     Dates: start: 20100928, end: 20101019
  6. LIPITOR [Suspect]
     Indication: PRODUCT USED FOR UNKNOWN INDICATION
     Dosage: 10 MG, QD
     Route: 048
     Dates: start: 20100421, end: 20101019
  7. ARTIST [Concomitant]
     Dosage: 1.25 MG, QD
     Route: 048
     Dates: start: 20100422
  8. TAKEPRON [Concomitant]
     Dosage: OD, 15 MG, QD
     Route: 048
     Dates: start: 20100421
  9. 8-HOUR BAYER [Concomitant]
     Dosage: 100 MG, QD
     Route: 048
     Dates: start: 20100420
  10. PLAVIX [Concomitant]
     Dosage: 75 MG, QD
     Route: 048
     Dates: start: 20100420
  11. LASIX [Concomitant]
     Dosage: 10 MG, QD
     Route: 048
     Dates: start: 20100428
  12. ALESION [Concomitant]
     Dosage: 10 MG, QD
     Route: 048
     Dates: start: 20100907
  13. MAGLAX [Concomitant]
     Dosage: 750 MG, QD
     Route: 048
     Dates: start: 20100901

REACTIONS (2)
  - LIVER DISORDER [None]
  - UPPER RESPIRATORY TRACT INFLAMMATION [None]
